FAERS Safety Report 11570863 (Version 1)
Quarter: 2015Q3

REPORT INFORMATION
  Report Type: Spontaneous
  Country: US (occurrence: US)
  Receive Date: 20150916
  Receipt Date: 20150916
  Transmission Date: 20151125
  Serious: No
  Sender: FDA-Public Use
  Company Number: US-ELI_LILLY_AND_COMPANY-US200909003713

PATIENT
  Sex: Female

DRUGS (1)
  1. FORTEO [Suspect]
     Active Substance: TERIPARATIDE
     Dosage: 20 UG, DAILY (1/D)
     Route: 058
     Dates: start: 20090908, end: 20090911

REACTIONS (8)
  - Dysuria [Unknown]
  - Saliva altered [Unknown]
  - Pollakiuria [Unknown]
  - Headache [Unknown]
  - Nausea [Unknown]
  - Palpitations [Unknown]
  - Vomiting [Unknown]
  - Myalgia [Unknown]

NARRATIVE: CASE EVENT DATE: 20090910
